FAERS Safety Report 8585383-3 (Version None)
Quarter: 2012Q3

REPORT INFORMATION
  Report Type: 
  Country: None (occurrence: None)
  Receive Date: 20120810
  Receipt Date: 20120802
  Transmission Date: 20120928
  Serious: Yes (Other)
  Sender: FDA-Public Use
  Company Number: US-BAYER-2012-072241

PATIENT
  Age: 32 Year
  Sex: Female

DRUGS (1)
  1. MIRENA [Suspect]
     Indication: CONTRACEPTION
     Dosage: 20 MCG/24HR, CONT
     Route: 015
     Dates: start: 20120502, end: 20120706

REACTIONS (8)
  - PALLOR [None]
  - PRESYNCOPE [None]
  - PROCEDURAL PAIN [None]
  - DEVICE BREAKAGE [None]
  - UTERINE PERFORATION [None]
  - ABDOMINAL PAIN [None]
  - DEVICE DISLOCATION [None]
  - FATIGUE [None]
